FAERS Safety Report 23032155 (Version 1)
Quarter: 2023Q4

REPORT INFORMATION
  Report Type: Report from Study
  Country: EG (occurrence: EG)
  Receive Date: 20231005
  Receipt Date: 20231005
  Transmission Date: 20240110
  Serious: Yes (Other)
  Sender: FDA-Public Use
  Company Number: EG-SANDOZ-SDZ2023EG037721

PATIENT
  Sex: Male
  Weight: 16 kg

DRUGS (1)
  1. OMNITROPE [Suspect]
     Active Substance: SOMATROPIN
     Indication: Growth hormone deficiency
     Dosage: 0.6 MG, QD (11 IU)
     Route: 058
     Dates: start: 202209

REACTIONS (7)
  - Weight gain poor [Recovered/Resolved]
  - Growth retardation [Recovered/Resolved]
  - Injection site pain [Not Recovered/Not Resolved]
  - Drug dose omission by device [Recovered/Resolved]
  - Wrong device used [Not Recovered/Not Resolved]
  - Wrong technique in product usage process [Recovered/Resolved]
  - Multiple use of single-use product [Recovered/Resolved]
